FAERS Safety Report 7035951-5 (Version None)
Quarter: 2010Q4

REPORT INFORMATION
  Report Type: 
  Country: None (occurrence: None)
  Receive Date: 20101008
  Receipt Date: 20100928
  Transmission Date: 20110411
  Serious: Yes (Other)
  Sender: FDA-Public Use
  Company Number: CHNY2010SE00495

PATIENT
  Age: 28 Year
  Sex: Female

DRUGS (1)
  1. OTRIVIN [Suspect]
     Indication: NASOPHARYNGITIS
     Dosage: UNK
     Route: 045

REACTIONS (5)
  - DRUG DEPENDENCE [None]
  - INTENTIONAL DRUG MISUSE [None]
  - OVERDOSE [None]
  - PANIC REACTION [None]
  - REBOUND EFFECT [None]
